FAERS Safety Report 11091365 (Version 1)
Quarter: 2015Q2

REPORT INFORMATION
  Report Type: Spontaneous
  Country: US (occurrence: None)
  Receive Date: 20150504
  Receipt Date: 20150504
  Transmission Date: 20150821
  Serious: Yes (Disabling)
  Sender: FDA-Public Use
  Company Number: None

PATIENT
  Age: 80 Year
  Sex: Female

DRUGS (1)
  1. DEPAKOTE [Suspect]
     Active Substance: DIVALPROEX SODIUM

REACTIONS (4)
  - Peripheral swelling [None]
  - Posture abnormal [None]
  - Disorientation [None]
  - Activities of daily living impaired [None]

NARRATIVE: CASE EVENT DATE: 20150423
